FAERS Safety Report 4528648-4 (Version None)
Quarter: 2004Q4

REPORT INFORMATION
  Report Type: 
  Country: None (occurrence: None)
  Receive Date: 20041216
  Receipt Date: 20041206
  Transmission Date: 20050328
  Serious: Yes (Other)
  Sender: FDA-Public Use
  Company Number: 200421641GDDC

PATIENT
  Age: 65 Year
  Sex: Female

DRUGS (9)
  1. NICODERM [Suspect]
     Indication: SMOKING CESSATION THERAPY
     Route: 062
  2. NICODERM CQ [Suspect]
     Indication: SMOKING CESSATION THERAPY
     Route: 062
     Dates: start: 20020101
  3. ANTIDEPRESSANT (UNSPECIFIED) [Concomitant]
     Indication: DEPRESSION
     Dosage: 75MG PER DAY
     Route: 048
     Dates: start: 19940101
  4. ATORVASTATIN [Concomitant]
     Route: 048
     Dates: start: 19980101
  5. RANITIDINE HYDROCHLORIDE [Concomitant]
     Indication: GASTROOESOPHAGEAL REFLUX DISEASE
     Route: 048
     Dates: start: 20000101
  6. DIDRONEL PMO [Concomitant]
     Indication: OSTEOPOROSIS
     Dosage: 1PACK AT NIGHT
     Route: 048
  7. CLONAZEPAM [Concomitant]
     Indication: ANXIETY
     Route: 048
     Dates: start: 19940101
  8. CALCIUM [Concomitant]
     Route: 048
     Dates: start: 20020101
  9. ERGOCALCIFEROL [Concomitant]
     Dates: start: 20020101

REACTIONS (3)
  - BASAL CELL CARCINOMA [None]
  - NASAL POLYPS [None]
  - URINARY TRACT INFECTION [None]
